FAERS Safety Report 10525066 (Version 1)
Quarter: 2014Q4

REPORT INFORMATION
  Report Type: Spontaneous
  Country: US (occurrence: US)
  Receive Date: 20141017
  Receipt Date: 20141017
  Transmission Date: 20150528
  Serious: No
  Sender: FDA-Public Use
  Company Number: US-PFIZER INC-2014281640

PATIENT
  Age: 66 Year
  Sex: Male
  Weight: 132 kg

DRUGS (5)
  1. RENAVIT [Concomitant]
     Indication: RENAL FAILURE
     Dosage: UNK
  2. NORPACE [Suspect]
     Active Substance: DISOPYRAMIDE PHOSPHATE
     Indication: ATRIAL FIBRILLATION
     Dosage: 150 MG, 4X/DAY (EVERY 6 HOURS)
     Route: 048
  3. PLAVIX [Concomitant]
     Active Substance: CLOPIDOGREL BISULFATE
  4. INSULIN [Concomitant]
     Active Substance: INSULIN NOS
     Indication: DIABETES MELLITUS
  5. BABY ASPIRIN [Concomitant]
     Active Substance: ASPIRIN
     Indication: CARDIAC DISORDER
     Dosage: 85 MG, UNK

REACTIONS (5)
  - Feeling abnormal [Unknown]
  - Insomnia [Unknown]
  - Asthenia [Unknown]
  - Decreased appetite [Unknown]
  - Drug ineffective [Unknown]
